FAERS Safety Report 16087095 (Version 1)
Quarter: 2019Q1

REPORT INFORMATION
  Report Type: Spontaneous
  Country: US (occurrence: US)
  Receive Date: 20190319
  Receipt Date: 20190319
  Transmission Date: 20190418
  Serious: No
  Sender: FDA-Public Use
  Company Number: US-ZYDUS-019070

PATIENT
  Age: 55 Year
  Sex: Male

DRUGS (1)
  1. LAMOTRIGINE. [Suspect]
     Active Substance: LAMOTRIGINE
     Indication: EPILEPSY
     Dosage: 150 MG EVERY MORNING, 250 MG EVERY MORNING
     Route: 048
     Dates: start: 201705

REACTIONS (33)
  - Feeling of relaxation [Recovered/Resolved]
  - Disturbance in attention [Unknown]
  - Paranoia [Unknown]
  - Gait disturbance [Unknown]
  - Dizziness [Unknown]
  - Dysphemia [Unknown]
  - Musculoskeletal stiffness [Unknown]
  - Anger [Unknown]
  - Depression [Unknown]
  - Neck pain [Unknown]
  - Hiccups [Unknown]
  - Affect lability [Unknown]
  - Jealous delusion [Unknown]
  - Headache [Unknown]
  - Anxiety [Unknown]
  - Hallucinations, mixed [Unknown]
  - Amnesia [Unknown]
  - Withdrawal syndrome [Not Recovered/Not Resolved]
  - Memory impairment [Unknown]
  - Photophobia [Unknown]
  - Aggression [Unknown]
  - Homicidal ideation [Unknown]
  - Influenza like illness [Unknown]
  - Head discomfort [Unknown]
  - Depressed mood [Unknown]
  - Euphoric mood [Recovered/Resolved]
  - Insomnia [Unknown]
  - Nightmare [Unknown]
  - Diplopia [Unknown]
  - Tremor [Unknown]
  - Suicidal ideation [Unknown]
  - Somnolence [Recovered/Resolved]
  - Clumsiness [Unknown]

NARRATIVE: CASE EVENT DATE: 2017
